FAERS Safety Report 17516099 (Version 1)
Quarter: 2020Q1

REPORT INFORMATION
  Report Type: Spontaneous
  Country: US (occurrence: US)
  Receive Date: 20200309
  Receipt Date: 20200309
  Transmission Date: 20200409
  Serious: No
  Sender: FDA-Public Use
  Company Number: US-TARO-2019TAR00820

PATIENT
  Sex: Male

DRUGS (2)
  1. ENALAPRIL MALEATE TABLETS USP 2.5 MG [Suspect]
     Active Substance: ENALAPRIL MALEATE
     Dosage: UNK
  2. ENALAPRIL MALEATE TABLETS USP 2.5 MG [Suspect]
     Active Substance: ENALAPRIL MALEATE
     Dosage: UNK

REACTIONS (2)
  - Abdominal pain upper [Unknown]
  - Malaise [Unknown]
